FAERS Safety Report 15978159 (Version 1)
Quarter: 2019Q1

REPORT INFORMATION
  Report Type: Spontaneous
  Country: US (occurrence: US)
  Receive Date: 20190218
  Receipt Date: 20190218
  Transmission Date: 20190418
  Serious: No
  Sender: FDA-Public Use
  Company Number: US-SA-2019SA044413

PATIENT

DRUGS (19)
  1. METOPROLOL SUCCINATE. [Suspect]
     Active Substance: METOPROLOL SUCCINATE
     Indication: HEART RATE
     Dosage: 25 MG
  2. ATORVASTATIN [Suspect]
     Active Substance: ATORVASTATIN
     Dosage: 80 MG
     Route: 065
  3. LYNEARMOL [Suspect]
     Active Substance: OXAPIUM IODIDE
     Dosage: UNK UNK, UNK
     Route: 065
  4. DULOXETINE HYDROCHLORIDE. [Suspect]
     Active Substance: DULOXETINE HYDROCHLORIDE
     Dosage: UNK UNK, UNK
     Route: 065
  5. VITAMIN D3 [Suspect]
     Active Substance: CHOLECALCIFEROL
     Dosage: UNK UNK, UNK
     Route: 065
  6. ASA [Suspect]
     Active Substance: ASPIRIN
     Dosage: UNK UNK, UNK
     Route: 065
  7. TRAMADOL HYDROCHLORIDE. [Suspect]
     Active Substance: TRAMADOL HYDROCHLORIDE
     Dosage: UNK UNK, UNK
     Route: 065
  8. FLAGYL [Suspect]
     Active Substance: METRONIDAZOLE\METRONIDAZOLE HYDROCHLORIDE
     Dosage: UNK UNK, UNK
     Route: 065
  9. ARAVA [Suspect]
     Active Substance: LEFLUNOMIDE
     Dosage: UNK UNK, UNK
     Route: 065
  10. OMEPRAZOLE MAGNESIUM. [Suspect]
     Active Substance: OMEPRAZOLE MAGNESIUM
     Dosage: 20.6 MG
     Route: 065
  11. VENLAFAXINE HYDROCHLORIDE. [Suspect]
     Active Substance: VENLAFAXINE HYDROCHLORIDE
     Dosage: 75 MG
     Route: 065
  12. CALCIUM CITRATE/VITAMIN D [Suspect]
     Active Substance: CALCIUM CITRATE\VITAMIN D
     Dosage: 500 MG
  13. VITAMIN B [Suspect]
     Active Substance: VITAMIN B
     Dosage: UNK UNK, UNK
     Route: 065
  14. PREGABALIN. [Suspect]
     Active Substance: PREGABALIN
     Dosage: 75 MG
     Route: 065
  15. ALENDRONATE SODIUM. [Suspect]
     Active Substance: ALENDRONATE SODIUM
     Dosage: 70 MG, QW
     Route: 065
  16. AMLODIPINE [Suspect]
     Active Substance: AMLODIPINE BESYLATE
     Indication: BLOOD PRESSURE MEASUREMENT
     Dosage: 5 MG
     Route: 065
  17. OXYBUTYNIN HYDROCHLORIDE [Suspect]
     Active Substance: OXYBUTYNIN CHLORIDE
     Dosage: 10 MG, QOD
     Route: 065
  18. ACETYLSALICYLIC ACID [Suspect]
     Active Substance: ASPIRIN
     Dosage: 81 MG
     Route: 065
  19. TORSEMIDE. [Suspect]
     Active Substance: TORSEMIDE
     Dosage: 10 MG
     Route: 065

REACTIONS (1)
  - Drug hypersensitivity [Unknown]
